FAERS Safety Report 8607462-4 (Version None)
Quarter: 2012Q3

REPORT INFORMATION
  Report Type: 
  Country: None (occurrence: None)
  Receive Date: 20120821
  Receipt Date: 20120810
  Transmission Date: 20120928
  Serious: Yes (Hospitalization, Other)
  Sender: FDA-Public Use
  Company Number: US-JNJFOC-20111111079

PATIENT
  Sex: Male
  Weight: 95.26 kg

DRUGS (5)
  1. DURAGESIC-100 [Suspect]
     Dosage: 2 100 UG/HR PATCHES
     Route: 062
     Dates: start: 20040101
  2. DURAGESIC-100 [Suspect]
     Indication: PAIN
     Route: 062
  3. FENTANYL-25 [Suspect]
     Indication: PAIN
     Route: 062
     Dates: start: 20010101
  4. FENTANYL-25 [Suspect]
     Route: 062
     Dates: start: 20010101, end: 20010101
  5. AN UNKNOWN MEDICATION [Suspect]
     Indication: PRODUCT USED FOR UNKNOWN INDICATION
     Route: 042
     Dates: start: 20090101, end: 20090101

REACTIONS (14)
  - DRUG DOSE OMISSION [None]
  - TIBIA FRACTURE [None]
  - ADVERSE EVENT [None]
  - LOCALISED INFECTION [None]
  - URTICARIA [None]
  - GASTROINTESTINAL DISORDER [None]
  - THROMBOSIS [None]
  - WITHDRAWAL SYNDROME [None]
  - INFECTION [None]
  - DYSPNOEA [None]
  - FOOT DEFORMITY [None]
  - THERAPEUTIC RESPONSE DECREASED [None]
  - FEELING ABNORMAL [None]
  - PRODUCT QUALITY ISSUE [None]
